FAERS Safety Report 14074704 (Version 1)
Quarter: 2017Q4

REPORT INFORMATION
  Report Type: Spontaneous
  Country: None (occurrence: FR)
  Receive Date: 20171010
  Receipt Date: 20171010
  Transmission Date: 20180321
  Serious: Yes (Other)
  Sender: FDA-Public Use
  Company Number: FR-MEDAC PHARMA, INC.-2029519

PATIENT
  Age: 80 Year
  Sex: Male

DRUGS (11)
  1. METOJECT [Suspect]
     Active Substance: METHOTREXATE SODIUM
     Indication: RHEUMATOID ARTHRITIS
     Route: 058
     Dates: start: 20120622, end: 20170901
  2. PLAVIX [Concomitant]
     Active Substance: CLOPIDOGREL BISULFATE
  3. LASIX [Concomitant]
     Active Substance: FUROSEMIDE
  4. DESLORATADINE. [Concomitant]
     Active Substance: DESLORATADINE
  5. FOLIC ACID. [Concomitant]
     Active Substance: FOLIC ACID
  6. CRESTOR [Concomitant]
     Active Substance: ROSUVASTATIN CALCIUM
  7. ENBREL [Suspect]
     Active Substance: ETANERCEPT
     Route: 058
     Dates: start: 20120720, end: 20170901
  8. ZOPICLONE [Concomitant]
     Active Substance: ZOPICLONE
  9. PANTOPRAZOLE SODIUM. [Concomitant]
     Active Substance: PANTOPRAZOLE SODIUM
  10. PROCORALAN [Concomitant]
     Active Substance: IVABRADINE
  11. PAROXETINE. [Concomitant]
     Active Substance: PAROXETINE

REACTIONS (1)
  - Papillary renal cell carcinoma [Recovering/Resolving]

NARRATIVE: CASE EVENT DATE: 201706
